FAERS Safety Report 8106434-6 (Version None)
Quarter: 2012Q1

REPORT INFORMATION
  Report Type: 
  Country: None (occurrence: None)
  Receive Date: 20120130
  Receipt Date: 20120118
  Transmission Date: 20120608
  Serious: Yes (Other)
  Sender: FDA-Public Use
  Company Number: 2011P1015699

PATIENT
  Age: 65 Year
  Sex: Male

DRUGS (5)
  1. ZOLPIDEM TARTRATE [Suspect]
     Dosage: 5 MG, QD, PO
     Route: 048
     Dates: start: 20111109
  2. WARFARIN SODIUM [Suspect]
     Indication: PRODUCT USED FOR UNKNOWN INDICATION
  3. PEPCID [Suspect]
     Dosage: PO
     Route: 048
  4. ASPIRIN [Suspect]
  5. LIVALO [Suspect]
     Indication: PRODUCT USED FOR UNKNOWN INDICATION

REACTIONS (2)
  - SLEEP APNOEA SYNDROME [None]
  - CONDITION AGGRAVATED [None]
